FAERS Safety Report 4967736-5 (Version None)
Quarter: 2006Q2

REPORT INFORMATION
  Report Type: 
  Country: None (occurrence: None)
  Receive Date: 20060410
  Receipt Date: 20060331
  Transmission Date: 20061013
  Serious: Yes (Hospitalization)
  Sender: FDA-Public Use
  Company Number: US-JNJFOC-20060401059

PATIENT
  Sex: Female
  Weight: 61.24 kg

DRUGS (5)
  1. FENTANYL [Suspect]
     Route: 062
  2. TOPAMAX [Concomitant]
     Indication: MIGRAINE
     Route: 048
  3. PROTONIX [Concomitant]
     Route: 048
  4. TIZANIDINE HCL [Concomitant]
     Route: 048
  5. ACTIQ [Concomitant]
     Indication: BREAKTHROUGH PAIN
     Route: 048

REACTIONS (11)
  - ANXIETY [None]
  - COLD SWEAT [None]
  - DEPRESSION [None]
  - DIZZINESS [None]
  - FEELING COLD [None]
  - HEARING IMPAIRED [None]
  - HYPERHIDROSIS [None]
  - IMPLANT SITE EFFUSION [None]
  - INSOMNIA [None]
  - NERVE COMPRESSION [None]
  - THORACIC OUTLET SYNDROME [None]
